FAERS Safety Report 19565479 (Version 1)
Quarter: 2021Q3

REPORT INFORMATION
  Report Type: Spontaneous
  Country: CA (occurrence: CA)
  Receive Date: 20210716
  Receipt Date: 20210716
  Transmission Date: 20211014
  Serious: Yes (Death)
  Sender: FDA-Public Use
  Company Number: CA-ACCORD-231629

PATIENT
  Age: 74 Year
  Sex: Male

DRUGS (12)
  1. ALLOPURINOL. [Concomitant]
     Active Substance: ALLOPURINOL
     Route: 065
  2. CLOPIDOGREL [Concomitant]
     Active Substance: CLOPIDOGREL BISULFATE
     Route: 065
  3. EXJADE [Suspect]
     Active Substance: DEFERASIROX
     Indication: IRON OVERLOAD
     Dosage: FREQUENCY: 1 EVERY 8 HOURS
     Route: 048
  4. EXJADE [Suspect]
     Active Substance: DEFERASIROX
     Indication: IRON OVERLOAD
     Dosage: FREQUENCY: 1 EVERY 1 DAYS
     Route: 048
  5. EXJADE [Suspect]
     Active Substance: DEFERASIROX
     Indication: IRON OVERLOAD
     Dosage: FREQUENCY: 1 EVERY 1 DAYS
     Route: 048
  6. FLOMAX [Suspect]
     Active Substance: TAMSULOSIN HYDROCHLORIDE
     Indication: PROSTATIC DISORDER
     Route: 048
  7. EXJADE [Suspect]
     Active Substance: DEFERASIROX
     Indication: IRON OVERLOAD
     Dosage: FREQUENCY: 1 EVERY 1 DAYS
     Route: 048
  8. METFORMIN [Suspect]
     Active Substance: METFORMIN HYDROCHLORIDE
     Indication: DIABETES MELLITUS
     Route: 048
  9. PROZAC [Concomitant]
     Active Substance: FLUOXETINE HYDROCHLORIDE
     Route: 065
  10. PANTOPRAZOLE [Suspect]
     Active Substance: PANTOPRAZOLE
     Indication: ANTACID THERAPY
     Route: 048
  11. SIMVASTATIN. [Suspect]
     Active Substance: SIMVASTATIN
     Indication: BLOOD CHOLESTEROL ABNORMAL
     Route: 048
  12. ZOPICLONE [Suspect]
     Active Substance: ZOPICLONE
     Indication: HYPNOTHERAPY
     Route: 048

REACTIONS (6)
  - Gastrointestinal pain [Fatal]
  - White blood cell count decreased [Fatal]
  - Malaise [Fatal]
  - Tooth infection [Fatal]
  - Muscle spasms [Fatal]
  - Serum ferritin abnormal [Fatal]
